FAERS Safety Report 24756144 (Version 1)
Quarter: 2024Q4

REPORT INFORMATION
  Report Type: Spontaneous
  Country: US (occurrence: None)
  Receive Date: 20241219
  Receipt Date: 20241219
  Transmission Date: 20250114
  Serious: Yes (Hospitalization, Other)
  Sender: MAIA PHARMACEUTICALS
  Company Number: US-MAIA Pharmaceuticals, Inc.-MAI202412-000106

PATIENT
  Age: 55 Year
  Sex: Female

DRUGS (1)
  1. LEVOTHYROXINE SODIUM [Suspect]
     Active Substance: LEVOTHYROXINE SODIUM
     Indication: Product used for unknown indication
     Dosage: 8 MG
     Route: 048

REACTIONS (6)
  - Cardiac arrest [Recovering/Resolving]
  - Haemorrhage [Unknown]
  - Hyperthyroidism [Recovering/Resolving]
  - Ventricular fibrillation [Recovering/Resolving]
  - Acute myocardial infarction [Recovering/Resolving]
  - Intentional overdose [Unknown]
